FAERS Safety Report 24832449 (Version 1)
Quarter: 2025Q1

REPORT INFORMATION
  Report Type: Spontaneous
  Country: US (occurrence: US)
  Receive Date: 20250110
  Receipt Date: 20250110
  Transmission Date: 20250409
  Serious: No
  Sender: TEVA
  Company Number: US-TEVA-VS-3282001

PATIENT
  Age: 51 Year
  Sex: Female
  Weight: 90.4 kg

DRUGS (16)
  1. PROPRANOLOL [Suspect]
     Active Substance: PROPRANOLOL HYDROCHLORIDE
     Indication: Product used for unknown indication
     Route: 048
  2. CITALOPRAM HYDROBROMIDE [Concomitant]
     Active Substance: CITALOPRAM HYDROBROMIDE
     Route: 048
  3. PROGESTERONE [Concomitant]
     Active Substance: PROGESTERONE
     Route: 048
  4. Mag64 DR [Concomitant]
     Route: 048
  5. CITALOPRAM HYDROBROMIDE [Concomitant]
     Active Substance: CITALOPRAM HYDROBROMIDE
     Route: 065
  6. PEPCID [Concomitant]
     Active Substance: FAMOTIDINE
     Route: 048
  7. BUSPIRONE HYDROCHLORIDE [Concomitant]
     Active Substance: BUSPIRONE HYDROCHLORIDE
     Route: 048
  8. Estradiol 1.25 g [Concomitant]
     Indication: Product used for unknown indication
     Route: 065
  9. LORAZEPAM [Concomitant]
     Active Substance: LORAZEPAM
     Indication: Product used for unknown indication
     Route: 048
  10. PROPRANOLOL [Concomitant]
     Active Substance: PROPRANOLOL HYDROCHLORIDE
     Indication: Product used for unknown indication
     Route: 048
  11. BUSPIRONE HYDROCHLORIDE [Concomitant]
     Active Substance: BUSPIRONE HYDROCHLORIDE
     Indication: Product used for unknown indication
     Route: 065
  12. Lumryz(Sodium Oxybate) [Concomitant]
  13. DICLOFENAC SODIUM [Concomitant]
     Active Substance: DICLOFENAC SODIUM
     Route: 048
  14. DIPHENHYDRAMINE HYDROCHLORIDE [Concomitant]
     Active Substance: DIPHENHYDRAMINE HYDROCHLORIDE
     Route: 065
  15. SUDAFED12 HOUR (PSEUDOEPHEDRINE HYDROCHLORIDE) [Concomitant]
     Route: 048
  16. MULTIVITAMINS (VITAMINS NOS) [Concomitant]
     Route: 065

REACTIONS (15)
  - Urinary tract infection [Unknown]
  - Terminal insomnia [Unknown]
  - Chest pain [Unknown]
  - Lethargy [Unknown]
  - Migraine [Unknown]
  - Fatigue [Unknown]
  - Feeling abnormal [Unknown]
  - Poor quality sleep [Unknown]
  - Heart rate increased [Unknown]
  - Discomfort [Unknown]
  - Micturition urgency [Unknown]
  - Dysuria [Unknown]
  - Abnormal behaviour [Unknown]
  - Tremor [Unknown]
  - Middle insomnia [Unknown]
